FAERS Safety Report 6142071-0 (Version None)
Quarter: 2009Q2

REPORT INFORMATION
  Report Type: 
  Country: None (occurrence: None)
  Receive Date: 20090402
  Receipt Date: 20090402
  Transmission Date: 20091009
  Serious: Yes (Other)
  Sender: FDA-Public Use
  Company Number: US-PFIZER INC-2008099663

PATIENT
  Age: 79 Year
  Sex: Female

DRUGS (6)
  1. LIPITOR [Suspect]
  2. GLUCOTROL [Suspect]
     Indication: BLOOD GLUCOSE INCREASED
     Dates: start: 20031101, end: 20080701
  3. GLUCOPHAGE [Suspect]
  4. GLIPIZIDE [Suspect]
     Indication: BLOOD GLUCOSE INCREASED
     Dates: start: 20080701
  5. VASOTEC [Suspect]
  6. VITAMINS [Concomitant]

REACTIONS (3)
  - ABASIA [None]
  - CONVERSION DISORDER [None]
  - DYSPNOEA [None]
